FAERS Safety Report 24975919 (Version 2)
Quarter: 2025Q1

REPORT INFORMATION
  Report Type: Spontaneous
  Country: JP (occurrence: JP)
  Receive Date: 20250217
  Receipt Date: 20250304
  Transmission Date: 20250408
  Serious: Yes (Hospitalization, Other)
  Sender: ALKEM
  Company Number: None

PATIENT
  Age: 54 Year
  Sex: Male

DRUGS (22)
  1. MYCOPHENOLATE MOFETIL [Suspect]
     Active Substance: MYCOPHENOLATE MOFETIL
     Indication: Immunosuppressant drug therapy
     Dosage: 1000 MILLIGRAM, QD (EVEY 1 DAY)
     Route: 065
  2. MYCOPHENOLATE MOFETIL [Suspect]
     Active Substance: MYCOPHENOLATE MOFETIL
     Dosage: 500 MILLIGRAM, QD (EVEY 1 DAY)
     Route: 065
  3. LINEZOLID [Suspect]
     Active Substance: LINEZOLID
     Indication: Mycobacterium fortuitum infection
     Dosage: 600 MILLIGRAM, QD, (EVERY 1 DAY)
     Route: 048
  4. LINEZOLID [Suspect]
     Active Substance: LINEZOLID
     Indication: Postoperative wound infection
     Dosage: 300 MILLIGRAM, QD (EVERY 1 DAY)
     Route: 048
  5. LINEZOLID [Suspect]
     Active Substance: LINEZOLID
     Indication: Osteomyelitis bacterial
  6. LINEZOLID [Suspect]
     Active Substance: LINEZOLID
     Indication: Wound
  7. TACROLIMUS [Suspect]
     Active Substance: TACROLIMUS
     Indication: Immunosuppressant drug therapy
     Dosage: 0.7 MILLIGRAM, QD, (EVERY ONE DAY)
     Route: 065
  8. TACROLIMUS [Suspect]
     Active Substance: TACROLIMUS
     Dosage: 0.4 MILLIGRAM, QD, (EVERY ONE DAY)
     Route: 065
  9. LEVOFLOXACIN [Suspect]
     Active Substance: LEVOFLOXACIN
     Indication: Mycobacterium fortuitum infection
     Dosage: 500 MILLIGRAM, QD, (DAILY)
     Route: 042
  10. LEVOFLOXACIN [Suspect]
     Active Substance: LEVOFLOXACIN
     Indication: Postoperative wound infection
     Route: 048
  11. LEVOFLOXACIN [Suspect]
     Active Substance: LEVOFLOXACIN
     Indication: Osteomyelitis bacterial
  12. LEVOFLOXACIN [Suspect]
     Active Substance: LEVOFLOXACIN
     Indication: Wound
  13. METHYLPREDNISOLONE [Suspect]
     Active Substance: METHYLPREDNISOLONE
     Indication: Immunosuppressant drug therapy
     Dosage: 250 MILLIGRAM, QD, (EVERY ONE DAY)
     Route: 065
  14. PREDNISOLONE [Suspect]
     Active Substance: PREDNISOLONE
     Indication: Immunosuppressant drug therapy
     Dosage: 5 MILLIGRAM, QD (EVERY 1 DAY)
     Route: 065
  15. CILASTATIN SODIUM\IMIPENEM [Concomitant]
     Active Substance: CILASTATIN SODIUM\IMIPENEM
     Indication: Mycobacterium fortuitum infection
     Dosage: 2 GRAM, QD, (EVERY ONE DAY)
     Route: 042
  16. CILASTATIN SODIUM\IMIPENEM [Concomitant]
     Active Substance: CILASTATIN SODIUM\IMIPENEM
     Indication: Postoperative wound infection
  17. CILASTATIN SODIUM\IMIPENEM [Concomitant]
     Active Substance: CILASTATIN SODIUM\IMIPENEM
     Indication: Osteomyelitis bacterial
  18. CILASTATIN SODIUM\IMIPENEM [Concomitant]
     Active Substance: CILASTATIN SODIUM\IMIPENEM
     Indication: Wound
  19. CLOFAZIMINE [Concomitant]
     Active Substance: CLOFAZIMINE
     Indication: Mycobacterium fortuitum infection
     Dosage: 100 MILLIGRAM, QD, (EVERY ONE DAY)
     Route: 048
  20. CLOFAZIMINE [Concomitant]
     Active Substance: CLOFAZIMINE
     Indication: Postoperative wound infection
  21. CLOFAZIMINE [Concomitant]
     Active Substance: CLOFAZIMINE
     Indication: Osteomyelitis bacterial
  22. CLOFAZIMINE [Concomitant]
     Active Substance: CLOFAZIMINE
     Indication: Wound

REACTIONS (8)
  - Wound [Recovered/Resolved]
  - Mycobacterium fortuitum infection [Recovered/Resolved]
  - Osteomyelitis bacterial [Recovered/Resolved]
  - Postoperative wound infection [Recovered/Resolved]
  - Thrombocytopenia [Recovered/Resolved]
  - Phlebitis [Unknown]
  - Abdominal pain [Recovering/Resolving]
  - Nausea [Recovering/Resolving]
